FAERS Safety Report 5645136-2 (Version None)
Quarter: 2008Q1

REPORT INFORMATION
  Report Type: 
  Country: None (occurrence: None)
  Receive Date: 20080229
  Receipt Date: 20080220
  Transmission Date: 20080703
  Serious: Yes (Other)
  Sender: FDA-Public Use
  Company Number: BR-ROCHE-498515

PATIENT

DRUGS (3)
  1. ROACUTAN [Suspect]
     Indication: ACNE
     Dates: start: 20070401, end: 20070516
  2. PURAN T4 [Concomitant]
     Indication: HYPOTHYROIDISM
  3. NORIPURUM [Concomitant]

REACTIONS (2)
  - NO ADVERSE EVENT [None]
  - NORMAL NEWBORN [None]
